FAERS Safety Report 8487633-0 (Version None)
Quarter: 2012Q2

REPORT INFORMATION
  Report Type: 
  Country: None (occurrence: None)
  Receive Date: 20120606
  Receipt Date: 20120531
  Transmission Date: 20120825
  Serious: Yes (Hospitalization)
  Sender: FDA-Public Use
  Company Number: 2012031804

PATIENT
  Age: 40 Year
  Sex: Male

DRUGS (5)
  1. PRIVIGEN [Suspect]
     Indication: IDIOPATHIC THROMBOCYTOPENIC PURPURA
     Dosage: 100 G TOTAL
     Route: 042
     Dates: start: 20120315
  2. PREDNISONE TAB [Concomitant]
  3. ROBAXACET (ROBAXISAL COMPUESTO) [Concomitant]
  4. TYLENOL WITH CODEINE (PANADEINE CO) [Concomitant]
  5. LOTEPREDNOL (LOTEPREDNOL) [Concomitant]

REACTIONS (6)
  - PAIN [None]
  - CHILLS [None]
  - HAEMOGLOBIN DECREASED [None]
  - HAEMOLYSIS [None]
  - FEELING OF BODY TEMPERATURE CHANGE [None]
  - MENINGITIS BACTERIAL [None]
